FAERS Safety Report 15711755 (Version 1)
Quarter: 2018Q4

REPORT INFORMATION
  Report Type: Spontaneous
  Country: GB (occurrence: GB)
  Receive Date: 20181212
  Receipt Date: 20181212
  Transmission Date: 20190205
  Serious: Yes (Other)
  Sender: FDA-Public Use
  Company Number: GB-TEVA-2018-GB-984875

PATIENT
  Age: 16 Year
  Sex: Female
  Weight: 73 kg

DRUGS (5)
  1. SUMATRIPTAN. [Suspect]
     Active Substance: SUMATRIPTAN
     Dosage: 100 MILLIGRAM DAILY; AS DIRECTED.
     Dates: start: 20180918
  2. PROCHLORPERAZINE. [Concomitant]
     Active Substance: PROCHLORPERAZINE
     Dosage: 1-2  TWO TO THREE TIMES A DAY.
     Dates: start: 20180815, end: 20180824
  3. SUMATRIPTAN. [Suspect]
     Active Substance: SUMATRIPTAN
     Dates: start: 20180924
  4. CALCIPOTRIOL [Concomitant]
     Active Substance: CALCIPOTRIENE
     Dosage: 1 DOSAGE FORMS DAILY; APPLY TO BODY
     Dates: start: 20180709
  5. RIGEVIDON [Concomitant]
     Active Substance: ETHINYL ESTRADIOL\LEVONORGESTREL
     Dosage: 1 DOSAGE FORMS DAILY; AS DIRECTED
     Dates: start: 20180918

REACTIONS (1)
  - Trismus [Recovered/Resolved]

NARRATIVE: CASE EVENT DATE: 20180918
